FAERS Safety Report 9681249 (Version 2)
Quarter: 2013Q4

REPORT INFORMATION
  Report Type: Report from Study
  Country: FR (occurrence: FR)
  Receive Date: 20131111
  Receipt Date: 20131203
  Transmission Date: 20140711
  Serious: Yes (Other)
  Sender: FDA-Public Use
  Company Number: FR-SHIRE-ALL1-2013-07602

PATIENT
  Sex: Female

DRUGS (5)
  1. ICATIBANT [Suspect]
     Indication: HEREDITARY ANGIOEDEMA
     Dosage: 30 MG, UNKNOWN
     Route: 058
     Dates: start: 20091228
  2. ICATIBANT [Suspect]
     Dosage: UNK, UNKNOWN
     Route: 058
     Dates: start: 20091230
  3. ICATIBANT [Suspect]
     Dosage: UNK, UNKNOWN
     Route: 058
     Dates: start: 2010
  4. ICATIBANT [Suspect]
     Dosage: UNK UNK, UNKNOWN
     Route: 065
     Dates: start: 201208
  5. MINEVA                            /00541901/ [Concomitant]
     Indication: CONTRACEPTION
     Dosage: 1 DF, 1X/DAY:QD
     Route: 065
     Dates: start: 2010

REACTIONS (1)
  - Breast angiosarcoma [Recovered/Resolved]
